FAERS Safety Report 10467513 (Version 2)
Quarter: 2018Q4

REPORT INFORMATION
  Report Type: Spontaneous
  Country: US (occurrence: US)
  Receive Date: 20140922
  Receipt Date: 20181011
  Transmission Date: 20190204
  Serious: No
  Sender: FDA-Public Use
  Company Number: US-009507513-1409USA009080

PATIENT
  Sex: Female

DRUGS (2)
  1. PULMICORT TURBUHALER [Suspect]
     Active Substance: BUDESONIDE
     Dosage: UNK
  2. ASMANEX [Suspect]
     Active Substance: MOMETASONE FUROATE
     Dosage: UNK
     Route: 055

REACTIONS (4)
  - Product quality issue [Unknown]
  - Adverse event [Unknown]
  - Drug ineffective [Unknown]
  - Dyspnoea [Unknown]
